FAERS Safety Report 24208552 (Version 2)
Quarter: 2024Q3

REPORT INFORMATION
  Report Type: Spontaneous
  Country: JP (occurrence: JP)
  Receive Date: 20240814
  Receipt Date: 20240905
  Transmission Date: 20241017
  Serious: No
  Sender: MERCK
  Company Number: JP-MSD-M2024-31001

PATIENT
  Age: 88 Year
  Sex: Male

DRUGS (1)
  1. LAGEVRIO [Suspect]
     Active Substance: MOLNUPIRAVIR
     Indication: COVID-19 treatment
     Dosage: 400 MILLIGRAM, BID
     Route: 048

REACTIONS (1)
  - Accidental underdose [Unknown]
